FAERS Safety Report 15636298 (Version 2)
Quarter: 2019Q1

REPORT INFORMATION
  Report Type: Spontaneous
  Country: US (occurrence: US)
  Receive Date: 20181120
  Receipt Date: 20190115
  Transmission Date: 20190417
  Serious: No
  Sender: FDA-Public Use
  Company Number: US-GLENMARK PHARMACEUTICALS-2018GMK037741

PATIENT

DRUGS (2)
  1. MUPIROCIN. [Suspect]
     Active Substance: MUPIROCIN
     Dosage: UNK (SECOND TUBE)
     Route: 061
  2. MUPIROCIN. [Suspect]
     Active Substance: MUPIROCIN
     Indication: FURUNCLE
     Dosage: UNK (FIRST TUBE)
     Route: 061

REACTIONS (3)
  - Intentional product use issue [Unknown]
  - Product quality issue [Unknown]
  - Drug ineffective [Unknown]

NARRATIVE: CASE EVENT DATE: 201809
